FAERS Safety Report 6248525-0 (Version None)
Quarter: 2009Q2

REPORT INFORMATION
  Report Type: 
  Country: None (occurrence: None)
  Receive Date: 20090629
  Receipt Date: 20090624
  Transmission Date: 20091009
  Serious: Yes (Life-Threatening)
  Sender: FDA-Public Use
  Company Number: JP-JNJFOC-20090100702

PATIENT
  Sex: Male
  Weight: 41.7 kg

DRUGS (11)
  1. ITRIZOLE [Suspect]
     Route: 041
  2. ITRIZOLE [Suspect]
     Indication: BRONCHOPULMONARY ASPERGILLOSIS
     Route: 041
  3. ITRIZOLE [Suspect]
     Route: 048
     Dates: start: 20081219
  4. MAXIPIME [Concomitant]
     Indication: PNEUMONIA
     Route: 042
  5. PASIL [Concomitant]
     Indication: PNEUMONIA
     Route: 042
  6. FINIBAX [Concomitant]
     Indication: PNEUMONIA
     Route: 042
  7. MINOPEN [Concomitant]
     Indication: PNEUMONIA
     Route: 042
  8. MUCODYNE [Concomitant]
     Indication: PNEUMONIA
     Route: 048
  9. CODEINE PHOSPHATE [Concomitant]
     Route: 048
  10. PURSENNID [Concomitant]
     Indication: PROPHYLAXIS
     Route: 048
  11. LOXOPROFEN [Concomitant]
     Indication: PNEUMONIA
     Route: 048

REACTIONS (3)
  - HEPATIC FUNCTION ABNORMAL [None]
  - INTERSTITIAL LUNG DISEASE [None]
  - WHITE BLOOD CELL COUNT INCREASED [None]
